FAERS Safety Report 8203239-2 (Version None)
Quarter: 2012Q1

REPORT INFORMATION
  Report Type: 
  Country: None (occurrence: None)
  Receive Date: 20120312
  Receipt Date: 20120305
  Transmission Date: 20120608
  Serious: Yes (Death, Other)
  Sender: FDA-Public Use
  Company Number: DE-ROCHE-1046142

PATIENT
  Age: 82 Year
  Sex: Female

DRUGS (2)
  1. RITUXIMAB [Suspect]
     Indication: B-CELL LYMPHOMA
  2. BENDAMUSTINE [Concomitant]
     Indication: B-CELL LYMPHOMA

REACTIONS (2)
  - HEPATITIS B [None]
  - ACUTE HEPATIC FAILURE [None]
